FAERS Safety Report 5309597-0 (Version None)
Quarter: 2007Q2

REPORT INFORMATION
  Report Type: 
  Country: None (occurrence: None)
  Receive Date: 20070427
  Receipt Date: 20070417
  Transmission Date: 20071010
  Serious: No
  Sender: FDA-Public Use
  Company Number: DE-BAXTER-2007BH003228

PATIENT
  Age: 69 Year
  Sex: Female
  Weight: 68 kg

DRUGS (1)
  1. IMMUNE GLOBULIN INTRAVENOUS (HUMAN) [Suspect]
     Indication: IMMUNODEFICIENCY
     Route: 042
     Dates: start: 20070323, end: 20070323

REACTIONS (3)
  - DYSPNOEA [None]
  - HOT FLUSH [None]
  - HYPERSENSITIVITY [None]
